FAERS Safety Report 17334243 (Version 1)
Quarter: 2020Q1

REPORT INFORMATION
  Report Type: Report from Study
  Country: None (occurrence: US)
  Receive Date: 20200128
  Receipt Date: 20200128
  Transmission Date: 20200409
  Serious: Yes (Hospitalization)
  Sender: FDA-Public Use
  Company Number: US-ABBVIE-20K-163-3245876-00

PATIENT
  Age: 77 Year
  Sex: Female

DRUGS (1)
  1. SKYRIZI [Suspect]
     Active Substance: RISANKIZUMAB-RZAA
     Indication: PSORIASIS
     Route: 058
     Dates: start: 20191001, end: 20200113

REACTIONS (7)
  - Gait disturbance [Recovering/Resolving]
  - Cough [Recovering/Resolving]
  - Pain [Unknown]
  - Hip arthroplasty [Unknown]
  - Chills [Recovering/Resolving]
  - Pyrexia [Recovering/Resolving]
  - Medical device pain [Recovering/Resolving]

NARRATIVE: CASE EVENT DATE: 20200105
